FAERS Safety Report 5232259-5 (Version None)
Quarter: 2007Q1

REPORT INFORMATION
  Report Type: 
  Country: None (occurrence: None)
  Receive Date: 20070207
  Receipt Date: 20070126
  Transmission Date: 20070707
  Serious: Yes (Hospitalization, Other)
  Sender: FDA-Public Use
  Company Number: EM2006-0194

PATIENT
  Age: 49 Year
  Sex: Male
  Weight: 75 kg

DRUGS (21)
  1. KETODERM [Concomitant]
     Indication: SEBORRHOEIC DERMATITIS
  2. DEBRIDAT ^IBRAHIM^ [Concomitant]
     Indication: GASTROINTESTINAL DISORDER
     Dates: start: 20050101
  3. BACTRIM [Concomitant]
     Indication: PROPHYLAXIS
     Dosage: 480 MG, UNK
     Dates: start: 20040706
  4. FASTURTEC [Concomitant]
     Indication: HYPERURICAEMIA
     Dates: start: 20060403
  5. SOLU-MEDROL [Concomitant]
     Dosage: 40 MG, THRICE
     Dates: start: 20060404
  6. DEPO-MEDROL [Concomitant]
     Route: 037
     Dates: start: 20060404
  7. DEPO-MEDROL [Concomitant]
     Route: 037
     Dates: start: 20060406
  8. ARACYTIN [Concomitant]
     Route: 037
     Dates: start: 20060404
  9. METHOTREXATE [Concomitant]
     Dosage: UNK, UNK
     Route: 037
     Dates: start: 20060404
  10. METHOTREXATE [Concomitant]
     Route: 037
     Dates: start: 20060406
  11. ENDOXAN [Concomitant]
     Dates: start: 20060405
  12. TRUVADA [Concomitant]
     Indication: HIV INFECTION
     Dosage: 1 TABLET, QD
     Dates: start: 20060112, end: 20060322
  13. REYATAZ [Concomitant]
     Indication: HIV INFECTION
     Dosage: 300 MG, QD
     Dates: start: 20050630
  14. NORVIR [Concomitant]
     Indication: HIV INFECTION
     Dosage: 100 MG, QD
     Dates: start: 20050630
  15. COMBIVIR [Concomitant]
     Indication: HIV INFECTION
     Dosage: 2 TABLET, QD
     Dates: start: 20060322
  16. VIREAD [Concomitant]
  17. EMTRIVA [Concomitant]
  18. ALDESLEUKIN [Suspect]
     Indication: HIV INFECTION
     Dosage: 9 MIU, QD
     Route: 058
     Dates: start: 20040705, end: 20040709
  19. ALDESLEUKIN [Suspect]
     Dosage: 9 MIU, QD
     Route: 058
     Dates: start: 20060906, end: 20040910
  20. ALDESLEUKIN [Suspect]
     Dosage: 9 MIU, QD
     Route: 048
     Dates: start: 20041103, end: 20041107
  21. ALDESLEUKIN [Suspect]
     Dosage: 9 MIU, QD
     Route: 058
     Dates: start: 20050105, end: 20050109

REACTIONS (7)
  - BURKITT'S LYMPHOMA [None]
  - CYTOMEGALOVIRUS TEST POSITIVE [None]
  - LYMPHOCYTOSIS [None]
  - NEUTROPENIA [None]
  - OESOPHAGITIS ULCERATIVE [None]
  - RENAL FAILURE ACUTE [None]
  - TENDONITIS [None]
